FAERS Safety Report 18044629 (Version 1)
Quarter: 2020Q3

REPORT INFORMATION
  Report Type: Report from Study
  Country: CA (occurrence: CA)
  Receive Date: 20200720
  Receipt Date: 20200720
  Transmission Date: 20201103
  Serious: Yes (Other)
  Sender: FDA-Public Use
  Company Number: CA-NALPROPION PHARMACEUTICALS INC.-2020-010535

PATIENT

DRUGS (1)
  1. CONTRAVE [Suspect]
     Active Substance: BUPROPION HYDROCHLORIDE\NALTREXONE HYDROCHLORIDE
     Indication: WEIGHT CONTROL
     Dosage: 90/8 MG, APPROXIMATELY ON 06/APR/2020, 2 TABLETS IN THE MORNING AND 2 TABLETS IN THE EVENING
     Route: 048
     Dates: start: 202004

REACTIONS (6)
  - Treatment noncompliance [Unknown]
  - Atrial fibrillation [Not Recovered/Not Resolved]
  - Peripheral coldness [Not Recovered/Not Resolved]
  - Food craving [Not Recovered/Not Resolved]
  - Arthralgia [Not Recovered/Not Resolved]
  - Drug titration error [Unknown]

NARRATIVE: CASE EVENT DATE: 2020
